FAERS Safety Report 5081884-3 (Version None)
Quarter: 2006Q3

REPORT INFORMATION
  Report Type: 
  Country: None (occurrence: None)
  Receive Date: 20060816
  Receipt Date: 20060811
  Transmission Date: 20061208
  Serious: Yes (Disabling)
  Sender: FDA-Public Use
  Company Number: US-MERCK-0608USA02896

PATIENT
  Age: 54 Year
  Sex: Female

DRUGS (2)
  1. FOSAMAX PLUS D [Suspect]
     Indication: OSTEOPOROSIS
     Route: 048
     Dates: start: 20060802
  2. NIASPAN [Concomitant]
     Route: 065

REACTIONS (2)
  - ABDOMINAL PAIN UPPER [None]
  - CHEST PAIN [None]
